FAERS Safety Report 5124031-1 (Version None)
Quarter: 2006Q4

REPORT INFORMATION
  Report Type: 
  Country: None (occurrence: None)
  Receive Date: 20061010
  Receipt Date: 20060928
  Transmission Date: 20070319
  Serious: Yes (Other)
  Sender: FDA-Public Use
  Company Number: PHHO2006MX16344

PATIENT
  Age: 1 Year
  Sex: Male

DRUGS (1)
  1. TRILEPTAL [Suspect]
     Indication: EPILEPSY
     Dosage: 5ML TID (60MG/ML)
     Route: 048
     Dates: start: 20051122

REACTIONS (4)
  - ANOREXIA [None]
  - HEPATITIS [None]
  - WEIGHT DECREASED [None]
  - YELLOW SKIN [None]
